FAERS Safety Report 25102202 (Version 1)
Quarter: 2025Q1

REPORT INFORMATION
  Report Type: Spontaneous
  Country: IL (occurrence: IL)
  Receive Date: 20250320
  Receipt Date: 20250320
  Transmission Date: 20250409
  Serious: Yes (Other)
  Sender: ELI LILLY AND COMPANY
  Company Number: IL-ELI_LILLY_AND_COMPANY-IL202503008787

PATIENT
  Age: 57 Year
  Sex: Male

DRUGS (1)
  1. MOUNJARO [Suspect]
     Active Substance: TIRZEPATIDE
     Indication: Product used for unknown indication
     Route: 065
     Dates: start: 20250215

REACTIONS (2)
  - Product dose omission issue [Unknown]
  - Increased appetite [Unknown]
